FAERS Safety Report 9102955 (Version 2)
Quarter: 2013Q1

REPORT INFORMATION
  Report Type: Spontaneous
  Country: US (occurrence: US)
  Receive Date: 20130219
  Receipt Date: 20130315
  Transmission Date: 20140127
  Serious: Yes (Hospitalization, Other)
  Sender: FDA-Public Use
  Company Number: US-ELI_LILLY_AND_COMPANY-US201301010263

PATIENT
  Age: 40 Year
  Sex: Female

DRUGS (9)
  1. HUMATROPE [Suspect]
     Indication: GROWTH HORMONE DEFICIENCY
     Dosage: 75 DF, QD
     Dates: start: 20121126
  2. HUMATROPE [Suspect]
     Dosage: 75 DF, QD
     Dates: start: 20121126
  3. HUMATROPE [Suspect]
     Indication: GROWTH HORMONE DEFICIENCY
     Dosage: 1.0 MG, UNK
     Route: 058
  4. CYMBALTA [Concomitant]
     Dosage: UNK, UNKNOWN
     Route: 065
  5. SYNTHROID [Concomitant]
     Dosage: UNK, UNKNOWN
     Route: 065
  6. CLONAPAM [Concomitant]
     Dosage: UNK, UNKNOWN
     Route: 065
  7. XANAX [Concomitant]
     Dosage: UNK, UNKNOWN
     Route: 065
  8. ACIDOPHILUS [Concomitant]
     Dosage: UNK, UNKNOWN
     Route: 065
  9. DIFLUCAN [Concomitant]
     Dosage: UNK, UNKNOWN
     Route: 065

REACTIONS (21)
  - Chest pain [Unknown]
  - Benign neoplasm [Unknown]
  - Neoplasm [Unknown]
  - Nervous system disorder [Unknown]
  - Weight decreased [Unknown]
  - Plantar fasciitis [Not Recovered/Not Resolved]
  - Autoimmune thyroiditis [Not Recovered/Not Resolved]
  - Eye disorder [Unknown]
  - Visual impairment [Unknown]
  - Memory impairment [Unknown]
  - Influenza [Unknown]
  - Madarosis [Unknown]
  - Fungal infection [Unknown]
  - Lung disorder [Not Recovered/Not Resolved]
  - Anxiety [Not Recovered/Not Resolved]
  - Incorrect storage of drug [Unknown]
  - Nervousness [Unknown]
  - Nervous system disorder [Unknown]
  - Hair colour changes [Unknown]
  - Influenza like illness [Unknown]
  - Feeling abnormal [Unknown]
